FAERS Safety Report 9373606 (Version 3)
Quarter: 2014Q1

REPORT INFORMATION
  Report Type: Spontaneous
  Country: US (occurrence: US)
  Receive Date: 20130627
  Receipt Date: 20140303
  Transmission Date: 20141002
  Serious: Yes (Hospitalization, Other)
  Sender: FDA-Public Use
  Company Number: US-B.I. PHARMACEUTICALS,INC./RIDGEFIELD-2013-BI-18142BP

PATIENT
  Age: 64 Year
  Sex: Female

DRUGS (11)
  1. COMBIVENT [Suspect]
     Indication: EMPHYSEMA
     Dosage: STRENGTH: 18 MCG / 103 MCG; DAILY DOSE: 72 MCG / 412 MCG
     Route: 055
     Dates: start: 20130527
  2. COMBIVENT [Suspect]
     Indication: CHRONIC OBSTRUCTIVE PULMONARY DISEASE
     Dosage: STRANTH,18MCG/103MCG, DAILY DOSE,144MCG/824MCG
     Route: 055
     Dates: start: 2005, end: 20130430
  3. COMBIVENT [Suspect]
     Indication: EMPHYSEMA
     Dosage: STRENGTH: 20 MCG / 100 MCG; DAILY DOSE: 80 MCG / 400 MCG
     Route: 055
     Dates: start: 20130528
  4. COMBIVENT [Suspect]
     Indication: CHRONIC OBSTRUCTIVE PULMONARY DISEASE
     Dosage: STRENGHT, 20MCG\100MCG, DAILY DOSE,80MCG/400MCG,
     Route: 055
     Dates: start: 20130501
  5. OXYGEN [Concomitant]
     Indication: EMPHYSEMA
     Dosage: (INHALATION AEROSOL) STRENGTH: 2 LITERS;
     Route: 055
  6. OXYGEN [Concomitant]
     Indication: BRONCHITIS
  7. DUONEB [Concomitant]
     Indication: EMPHYSEMA
     Dosage: (INHALATION AEROSOL)
     Route: 055
  8. DUONEB [Concomitant]
     Indication: BRONCHITIS
  9. SYMBICORD [Concomitant]
     Indication: CHRONIC OBSTRUCTIVE PULMONARY DISEASE
     Dosage: 4 PUF
     Route: 055
     Dates: start: 2005
  10. OXYBUTYNIN [Concomitant]
     Indication: HYPERTONIC BLADDER
     Dosage: 15 MG
     Route: 048
     Dates: start: 2005
  11. HYDROCHLOROTHAIZIDE [Concomitant]
     Indication: FLUID RETENTION
     Dosage: 12.5 MG
     Route: 048
     Dates: start: 2005

REACTIONS (9)
  - Lung neoplasm malignant [Not Recovered/Not Resolved]
  - Lung neoplasm malignant [Recovered/Resolved]
  - Lung neoplasm malignant [Not Recovered/Not Resolved]
  - Panic attack [Not Recovered/Not Resolved]
  - Depression [Not Recovered/Not Resolved]
  - Hypertension [Not Recovered/Not Resolved]
  - Upper respiratory tract infection [Not Recovered/Not Resolved]
  - Product quality issue [Recovered/Resolved]
  - Product quality issue [Unknown]
